FAERS Safety Report 7907521-5 (Version None)
Quarter: 2011Q4

REPORT INFORMATION
  Report Type: 
  Country: None (occurrence: None)
  Receive Date: 20111110
  Receipt Date: 20111031
  Transmission Date: 20120403
  Serious: Yes (Hospitalization, Other)
  Sender: FDA-Public Use
  Company Number: PHHY2011BR097089

PATIENT
  Sex: Male

DRUGS (2)
  1. INDAPAMIDE [Concomitant]
     Indication: DIURETIC THERAPY
     Dosage: 1.5 MG, DAILY
     Route: 048
  2. EXFORGE [Suspect]
     Dosage: 160 MG VALS AND 5 MG AMLO

REACTIONS (5)
  - GASTROINTESTINAL BACTERIAL INFECTION [None]
  - OEDEMA PERIPHERAL [None]
  - MITRAL VALVE DISEASE [None]
  - WRONG TECHNIQUE IN DRUG USAGE PROCESS [None]
  - ARRHYTHMIA [None]
